FAERS Safety Report 7817019-0 (Version None)
Quarter: 2011Q4

REPORT INFORMATION
  Report Type: 
  Country: None (occurrence: None)
  Receive Date: 20111017
  Receipt Date: 20111003
  Transmission Date: 20120403
  Serious: Yes (Hospitalization, Other)
  Sender: FDA-Public Use
  Company Number: AT-ELI_LILLY_AND_COMPANY-AT201110000852

PATIENT
  Age: 69 Year
  Sex: Female

DRUGS (5)
  1. ESCITALOPRAM [Concomitant]
     Dosage: UNK, UNKNOWN
  2. SEROQUEL [Concomitant]
  3. ZYPREXA [Suspect]
     Indication: MAJOR DEPRESSION
     Dosage: 7.5 MG, QD
  4. ESCITALOPRAM [Concomitant]
     Indication: MAJOR DEPRESSION
     Dosage: 20 MG, QD
  5. ZYPREXA [Suspect]
     Dosage: UNK, UNKNOWN

REACTIONS (2)
  - HOSPITALISATION [None]
  - EXTRAPYRAMIDAL DISORDER [None]
